FAERS Safety Report 8987458 (Version 1)
Quarter: 2012Q4

REPORT INFORMATION
  Report Type: 
  Country: TW (occurrence: TW)
  Receive Date: 20121227
  Receipt Date: 20121227
  Transmission Date: 20130627
  Serious: Yes (Other)
  Sender: FDA-Public Use
  Company Number: PHHY2012TW119650

PATIENT
  Age: 39 Year
  Sex: Female

DRUGS (1)
  1. RISPERIDONE [Suspect]
     Indication: SCHIZOPHRENIA
     Dosage: 2 mg, BID

REACTIONS (10)
  - Mastitis [Recovered/Resolved]
  - Granuloma [Recovered/Resolved]
  - Breast mass [Recovered/Resolved]
  - Breast tenderness [Recovered/Resolved]
  - Erythema [Recovered/Resolved]
  - Skin lesion [Recovered/Resolved]
  - Breast pain [Recovered/Resolved]
  - Breast oedema [Recovered/Resolved]
  - Breast calcifications [Recovered/Resolved]
  - Hyperprolactinaemia [Recovered/Resolved]
